FAERS Safety Report 24546507 (Version 1)
Quarter: 2024Q4

REPORT INFORMATION
  Report Type: Spontaneous
  Country: US (occurrence: US)
  Receive Date: 20241024
  Receipt Date: 20241024
  Transmission Date: 20250115
  Serious: Yes (Other)
  Sender: SANOFI AVENTIS
  Company Number: US-SA-2024SA305048

PATIENT
  Age: 46 Year
  Sex: Female

DRUGS (3)
  1. DUPIXENT [Suspect]
     Active Substance: DUPILUMAB
     Indication: Eczema
     Dosage: 600.000MG 1X
     Route: 058
     Dates: start: 20240808, end: 20240808
  2. DUPIXENT [Suspect]
     Active Substance: DUPILUMAB
     Dosage: 300 MG, QOW
     Route: 058
     Dates: start: 202408, end: 202408
  3. BENLYSTA [Concomitant]
     Active Substance: BELIMUMAB
     Dosage: UNK

REACTIONS (7)
  - Systemic lupus erythematosus [Recovering/Resolving]
  - Condition aggravated [Recovering/Resolving]
  - SARS-CoV-2 test positive [Unknown]
  - Cough [Recovered/Resolved]
  - Pyrexia [Recovered/Resolved]
  - Dyspnoea [Recovered/Resolved]
  - Asthma [Unknown]

NARRATIVE: CASE EVENT DATE: 20240101
